FAERS Safety Report 4766062-7 (Version None)
Quarter: 2005Q3

REPORT INFORMATION
  Report Type: 
  Country: None (occurrence: None)
  Receive Date: 20050912
  Receipt Date: 20050901
  Transmission Date: 20060218
  Serious: Yes (Hospitalization, Other)
  Sender: FDA-Public Use
  Company Number: IL-NOVOPROD-246790

PATIENT
  Age: 17 Year
  Sex: Female
  Weight: 59 kg

DRUGS (2)
  1. NOVOMIX 30 FLEXPEN [Suspect]
     Indication: DIABETES MELLITUS INSULIN-DEPENDENT
     Dosage: 36 IU, QD
     Dates: start: 20050717
  2. NOVOMIX 30 FLEXPEN [Suspect]
     Dates: start: 20050805

REACTIONS (3)
  - ABDOMINAL PAIN [None]
  - TACHYCARDIA [None]
  - VOMITING [None]
